FAERS Safety Report 21011332 (Version 1)
Quarter: 2022Q2

REPORT INFORMATION
  Report Type: Spontaneous
  Country: US (occurrence: US)
  Receive Date: 20220627
  Receipt Date: 20220627
  Transmission Date: 20220720
  Serious: No
  Sender: FDA-Public Use
  Company Number: US-BRISTOL-MYERS SQUIBB COMPANY-2022-060252

PATIENT
  Age: 75 Day
  Sex: Female

DRUGS (1)
  1. REVLIMID [Suspect]
     Active Substance: LENALIDOMIDE
     Indication: Plasma cell myeloma
     Dosage: FREQUENCY: MONDAY, WEDNESDAY, AND FRIDAY
     Route: 048
     Dates: start: 202204

REACTIONS (2)
  - Adverse event [Unknown]
  - Off label use [Unknown]
